FAERS Safety Report 6772877-6 (Version None)
Quarter: 2010Q2

REPORT INFORMATION
  Report Type: 
  Country: None (occurrence: None)
  Receive Date: 20100616
  Receipt Date: 20100604
  Transmission Date: 20101027
  Serious: Yes (Other)
  Sender: FDA-Public Use
  Company Number: GB-ELI_LILLY_AND_COMPANY-GB201006001765

PATIENT
  Sex: Female

DRUGS (4)
  1. ZYPREXA [Suspect]
     Dosage: 20 MG, UNK
  2. ZYPREXA [Suspect]
     Dosage: 10 MG, UNK
  3. ZYPREXA [Suspect]
     Dosage: 2.5 MG, UNK
  4. VITAMINS [Concomitant]

REACTIONS (12)
  - ANAEMIA [None]
  - BACK PAIN [None]
  - BLOOD OESTROGEN ABNORMAL [None]
  - DYSMENORRHOEA [None]
  - FLUID RETENTION [None]
  - GALACTORRHOEA [None]
  - HAEMOGLOBIN ABNORMAL [None]
  - OEDEMA PERIPHERAL [None]
  - PLATELET COUNT DECREASED [None]
  - UTERINE HAEMORRHAGE [None]
  - WEIGHT INCREASED [None]
  - WEIGHT LOSS POOR [None]
